FAERS Safety Report 15614445 (Version 4)
Quarter: 2019Q1

REPORT INFORMATION
  Report Type: Report from Study
  Country: None (occurrence: JP)
  Receive Date: 20181113
  Receipt Date: 20190130
  Transmission Date: 20190417
  Serious: Yes (Death, Other)
  Sender: FDA-Public Use
  Company Number: JP-ABBVIE-18P-087-2449468-00

PATIENT
  Age: 51 Year
  Sex: Male
  Weight: 51.6 kg

DRUGS (13)
  1. HUMIRA [Suspect]
     Active Substance: ADALIMUMAB
     Route: 058
     Dates: start: 20140210, end: 20140210
  2. HUMIRA [Suspect]
     Active Substance: ADALIMUMAB
     Route: 058
     Dates: start: 20140224, end: 201411
  3. HUMIRA [Suspect]
     Active Substance: ADALIMUMAB
     Indication: ANAEMIA OF CHRONIC DISEASE
     Route: 058
     Dates: start: 20140127, end: 20140127
  4. MELILOT EXTRACT [Concomitant]
     Indication: HAEMORRHOIDS
  5. BERBERINE CHLORIDE GERANIUM HERB EXTRACT MIX [Concomitant]
     Indication: CROHN^S DISEASE
  6. DIFLUCORTOLONE VALERATE W/LIDOCAINE [Concomitant]
     Indication: HAEMORRHOIDS
  7. MESALAZINE [Concomitant]
     Active Substance: MESALAMINE
     Indication: CROHN^S DISEASE
     Route: 048
  8. RAMOSETRON HYDROCHLORIDE [Concomitant]
     Active Substance: RAMOSETRON HYDROCHLORIDE
     Indication: ENTEROCOLITIS
  9. POLYCARBOPHIL CALCIUM [Concomitant]
     Active Substance: CALCIUM POLYCARBOPHIL
     Indication: ENTEROCOLITIS
  10. BIFIDOBACTERIUM [Concomitant]
     Active Substance: BIFIDOBACTERIUM LONGUM
     Indication: CROHN^S DISEASE
  11. LOPERAMIDE HYDROCHLORIDE. [Concomitant]
     Active Substance: LOPERAMIDE HYDROCHLORIDE
     Indication: CROHN^S DISEASE
  12. RABEPRAZOLE SODIUM. [Concomitant]
     Active Substance: RABEPRAZOLE SODIUM
     Indication: GASTROOESOPHAGEAL REFLUX DISEASE
  13. ELENTAL [Concomitant]
     Active Substance: AMINO ACIDS\CARBOHYDRATES\MINERALS\SOYBEAN OIL\VITAMINS
     Indication: CROHN^S DISEASE

REACTIONS (1)
  - Anal cancer [Fatal]

NARRATIVE: CASE EVENT DATE: 20141025
